FAERS Safety Report 6399055-7 (Version None)
Quarter: 2009Q4

REPORT INFORMATION
  Report Type: 
  Country: None (occurrence: None)
  Receive Date: 20091008
  Receipt Date: 20090923
  Transmission Date: 20100525
  Serious: Yes (Hospitalization)
  Sender: FDA-Public Use
  Company Number: SPV1-2009-01884

PATIENT
  Age: 15 Year
  Sex: Male

DRUGS (1)
  1. ELAPRASE [Suspect]
     Indication: MUCOPOLYSACCHARIDOSIS II
     Dosage: 1X/WEEK, IV DRIP
     Route: 041
     Dates: start: 20071212

REACTIONS (4)
  - DYSPNOEA [None]
  - MEDICAL DEVICE COMPLICATION [None]
  - TRANSFUSION-RELATED ACUTE LUNG INJURY [None]
  - TRAUMATIC LUNG INJURY [None]
